FAERS Safety Report 16030114 (Version 4)
Quarter: 2019Q2

REPORT INFORMATION
  Report Type: Spontaneous
  Country: US (occurrence: US)
  Receive Date: 20190304
  Receipt Date: 20190424
  Transmission Date: 20190711
  Serious: No
  Sender: FDA-Public Use
  Company Number: US-009507513-1902USA004986

PATIENT
  Age: 72 Year
  Sex: Male

DRUGS (1)
  1. PREGNYL [Suspect]
     Active Substance: CHORIOGONADOTROPIN ALFA
     Indication: PROPHYLAXIS
     Dosage: 400 USP UNITS, 3 TIMES WEEKLY, ROUTE OF ADMINISTRATION REPORTED AS INJECTABLE.
     Dates: start: 2002

REACTIONS (3)
  - Product dose omission [Unknown]
  - Hypoacusis [Unknown]
  - Product container issue [Unknown]

NARRATIVE: CASE EVENT DATE: 2019
